FAERS Safety Report 8268481-3 (Version None)
Quarter: 2012Q2

REPORT INFORMATION
  Report Type: 
  Country: None (occurrence: None)
  Receive Date: 20120409
  Receipt Date: 20120328
  Transmission Date: 20120825
  Serious: Yes (Hospitalization, Other)
  Sender: FDA-Public Use
  Company Number: PHEH2012US006125

PATIENT
  Sex: Male

DRUGS (5)
  1. FOLIC ACID [Concomitant]
     Dosage: 1 MG, DAILY
     Route: 048
  2. EXJADE [Suspect]
     Indication: THALASSAEMIA SICKLE CELL
     Dosage: 1000 MG, QD
     Route: 048
  3. SYMBICORT [Concomitant]
  4. ASPIRIN [Concomitant]
     Dosage: 1 DF, DAILY
     Route: 048
  5. PEN-VEE K [Concomitant]
     Dosage: 250 MG, BID
     Route: 048

REACTIONS (3)
  - PNEUMONIA [None]
  - PAIN [None]
  - SICKLE CELL ANAEMIA WITH CRISIS [None]
